FAERS Safety Report 17349637 (Version 1)
Quarter: 2020Q1

REPORT INFORMATION
  Report Type: Spontaneous
  Country: US (occurrence: US)
  Receive Date: 20200129
  Receipt Date: 20200129
  Transmission Date: 20200409
  Serious: Yes (Other)
  Sender: FDA-Public Use
  Company Number: None

PATIENT
  Age: 65 Year
  Sex: Male
  Weight: 92.25 kg

DRUGS (7)
  1. PREGABLIN [Suspect]
     Active Substance: PREGABALIN
     Indication: NEURALGIA
     Route: 048
  2. DOXIZOSIN [Concomitant]
  3. LIBRAX [Concomitant]
     Active Substance: CHLORDIAZEPOXIDE HYDROCHLORIDE\CLIDINIUM BROMIDE
  4. PREGABLIN [Concomitant]
     Active Substance: PREGABALIN
  5. AMBIEN (GENERIC) [Concomitant]
  6. LEVOTHORAXIN [Concomitant]
  7. TYLENOL [Concomitant]
     Active Substance: ACETAMINOPHEN

REACTIONS (2)
  - Dyspnoea [None]
  - Middle insomnia [None]

NARRATIVE: CASE EVENT DATE: 20200124
